FAERS Safety Report 12156248 (Version 1)
Quarter: 2016Q1

REPORT INFORMATION
  Report Type: Spontaneous
  Country: ZA (occurrence: ZA)
  Receive Date: 20160307
  Receipt Date: 20160307
  Transmission Date: 20160526
  Serious: Yes (Hospitalization, Other)
  Sender: FDA-Public Use
  Company Number: ZA-MYLANLABS-2016M1009264

PATIENT

DRUGS (1)
  1. TENOFOVIR DF/EFAVIRENZ/EMTRICITABINE TABLETS 300/600/200MG [Suspect]
     Active Substance: EFAVIRENZ\EMTRICITABINE\TENOFOVIR DISOPROXIL FUMARATE
     Indication: ANTIRETROVIRAL THERAPY
     Dosage: UNK
     Route: 048
     Dates: start: 20140408

REACTIONS (11)
  - Confusional state [Unknown]
  - Fatigue [Unknown]
  - Decreased appetite [Unknown]
  - CD4 lymphocytes decreased [Unknown]
  - Haemoglobin decreased [Unknown]
  - Disturbance in attention [Unknown]
  - Dizziness [Unknown]
  - Dyspnoea [Unknown]
  - Blood creatinine increased [Unknown]
  - Viral load increased [Unknown]
  - Weight decreased [Unknown]

NARRATIVE: CASE EVENT DATE: 20140424
